FAERS Safety Report 4837297-X (Version None)
Quarter: 2005Q4

REPORT INFORMATION
  Report Type: 
  Country: None (occurrence: None)
  Receive Date: 20051122
  Receipt Date: 20051110
  Transmission Date: 20060501
  Serious: Yes (Hospitalization, Other)
  Sender: FDA-Public Use
  Company Number: FRWYE127910NOV05

PATIENT
  Age: 37 Year
  Sex: Female

DRUGS (5)
  1. ADEPAL (LEVONORGESTREL/ETHINYL ESTRADIOL, TABELT, 0) [Suspect]
     Indication: CONTRACEPTION
     Dosage: 1 TABELT 1X PER 1 DAY, ORAL
     Route: 048
     Dates: start: 20000101
  2. RIFAMPICIN [Suspect]
     Dosage: 500 MG 1X PER 1 DAY, ORAL
     Route: 048
     Dates: start: 20020430, end: 20021030
  3. RIMIFON [Suspect]
     Dosage: 100 MG 1X PER 1 DAY, ORAL
     Route: 048
     Dates: start: 20020430, end: 20021030
  4. PIRILENE (PYRAZINAMIDE) [Concomitant]
  5. MYAMBUTOL [Concomitant]

REACTIONS (5)
  - ABORTION INDUCED [None]
  - DRUG EXPOSURE DURING PREGNANCY [None]
  - DRUG INEFFECTIVE [None]
  - DRUG INTERACTION [None]
  - PREGNANCY ON ORAL CONTRACEPTIVE [None]
